FAERS Safety Report 13069614 (Version 1)
Quarter: 2016Q4

REPORT INFORMATION
  Report Type: Spontaneous
  Country: CN (occurrence: CN)
  Receive Date: 20161228
  Receipt Date: 20161228
  Transmission Date: 20170207
  Serious: Yes (Other)
  Sender: FDA-Public Use
  Company Number: CN-ABBVIE-16P-035-1823569-00

PATIENT
  Age: 62 Year
  Sex: Male

DRUGS (11)
  1. DEPAKINE [Suspect]
     Active Substance: VALPROATE SODIUM
     Indication: EPILEPSY
     Route: 048
     Dates: start: 20161002, end: 20161002
  2. AMINOCAPROIC ACID. [Suspect]
     Active Substance: AMINOCAPROIC ACID
     Indication: HAEMORRHAGE
     Route: 041
     Dates: start: 20161001, end: 20161006
  3. GLUCOSE INJECTION [Concomitant]
     Indication: PRODUCT USED FOR UNKNOWN INDICATION
     Route: 065
     Dates: start: 20161001, end: 20161006
  4. DEPAKINE [Suspect]
     Active Substance: VALPROATE SODIUM
     Route: 041
     Dates: start: 20161003, end: 20161003
  5. VALPROATE SODIUM. [Suspect]
     Active Substance: VALPROATE SODIUM
     Indication: PRODUCT USED FOR UNKNOWN INDICATION
     Route: 041
     Dates: start: 20161001, end: 20161002
  6. POTASSIUM CHLORIDE. [Concomitant]
     Active Substance: POTASSIUM CHLORIDE
     Indication: PRODUCT USED FOR UNKNOWN INDICATION
     Route: 065
     Dates: start: 20161001, end: 20161006
  7. INSULIN NEUTRAL [Concomitant]
     Indication: PRODUCT USED FOR UNKNOWN INDICATION
     Route: 065
     Dates: start: 20161001, end: 20161006
  8. URAPIDIL HYDROCHLORIDE [Concomitant]
     Active Substance: URAPIDIL HYDROCHLORIDE
     Indication: PRODUCT USED FOR UNKNOWN INDICATION
     Route: 065
     Dates: start: 20161001, end: 20161005
  9. SODIUM CHLORIDE. [Concomitant]
     Active Substance: SODIUM CHLORIDE
     Indication: PRODUCT USED FOR UNKNOWN INDICATION
     Route: 065
     Dates: start: 20161001, end: 20161005
  10. DEPAKINE [Suspect]
     Active Substance: VALPROATE SODIUM
     Route: 041
     Dates: start: 20161004, end: 20161004
  11. DEPAKINE [Suspect]
     Active Substance: VALPROATE SODIUM
     Route: 048
     Dates: start: 201610, end: 20161014

REACTIONS (1)
  - Renal impairment [Recovering/Resolving]

NARRATIVE: CASE EVENT DATE: 20161009
